FAERS Safety Report 9510531 (Version 3)
Quarter: 2013Q4

REPORT INFORMATION
  Report Type: Report from Study
  Country: DE (occurrence: DE)
  Receive Date: 20130909
  Receipt Date: 20131017
  Transmission Date: 20140711
  Serious: Yes (Hospitalization, Other)
  Sender: FDA-Public Use
  Company Number: PHHY2013DE065909

PATIENT
  Sex: Male
  Weight: 65 kg

DRUGS (1)
  1. ICL670A [Suspect]
     Indication: MYELODYSPLASTIC SYNDROME
     Dosage: 500 MG, DAILY (01 DF)
     Route: 048
     Dates: start: 20130123, end: 20130304

REACTIONS (4)
  - Atypical pneumonia [Recovered/Resolved]
  - Pyrexia [Recovered/Resolved]
  - Aplasia [Unknown]
  - Myelodysplastic syndrome transformation [Unknown]
